FAERS Safety Report 8066747-3 (Version None)
Quarter: 2012Q1

REPORT INFORMATION
  Report Type: 
  Country: None (occurrence: None)
  Receive Date: 20120124
  Receipt Date: 20120124
  Transmission Date: 20120608
  Serious: Yes (Death, Hospitalization)
  Sender: FDA-Public Use
  Company Number: US-B.I. PHARMACEUTICALS,INC./RIDGEFIELD-2011-BP-28158BP

PATIENT
  Age: 75 Year
  Sex: Female

DRUGS (7)
  1. LASIX [Concomitant]
  2. SPIRONOLACTONE [Concomitant]
  3. BUDESONIDE [Concomitant]
  4. PRAVASTATIN [Concomitant]
  5. PRADAXA [Suspect]
     Indication: ATRIAL FIBRILLATION
     Dosage: 300 MG
     Route: 048
     Dates: start: 20111110
  6. LEVOTHYROXINE SODIUM [Concomitant]
  7. PROZAC [Concomitant]

REACTIONS (3)
  - BLEEDING VARICOSE VEIN [None]
  - CREATININE RENAL CLEARANCE DECREASED [None]
  - HAEMORRHAGE [None]
